FAERS Safety Report 23294851 (Version 1)
Quarter: 2023Q4

REPORT INFORMATION
  Report Type: Spontaneous
  Country: US (occurrence: US)
  Receive Date: 20231213
  Receipt Date: 20231213
  Transmission Date: 20240110
  Serious: No
  Sender: FDA-Public Use
  Company Number: US-JNJFOC-20231214226

PATIENT
  Age: 31 Year
  Sex: Male

DRUGS (2)
  1. INVEGA HAFYERA [Suspect]
     Active Substance: PALIPERIDONE PALMITATE
     Indication: Bipolar disorder
     Route: 030
  2. INVEGA HAFYERA [Suspect]
     Active Substance: PALIPERIDONE PALMITATE

REACTIONS (4)
  - Product dose omission issue [Unknown]
  - Illness [Unknown]
  - Stress [Unknown]
  - Off label use [Unknown]

NARRATIVE: CASE EVENT DATE: 20231206
